FAERS Safety Report 4780855-1 (Version None)
Quarter: 2005Q3

REPORT INFORMATION
  Report Type: 
  Country: None (occurrence: None)
  Receive Date: 20050914
  Receipt Date: 20040803
  Transmission Date: 20060218
  Serious: Yes (Death, Other)
  Sender: FDA-Public Use
  Company Number: 163-20785-04080074

PATIENT
  Age: 85 Year
  Sex: Male

DRUGS (2)
  1. THALOMID [Suspect]
     Indication: RENAL CELL CARCINOMA STAGE IV
     Dosage: 200 MG, QD, ORAL
     Route: 048
     Dates: start: 20040719, end: 20040816
  2. THALOMID [Suspect]

REACTIONS (6)
  - DEATH [None]
  - DISEASE PROGRESSION [None]
  - DIZZINESS [None]
  - NAUSEA [None]
  - PULMONARY CONGESTION [None]
  - VOMITING [None]
